FAERS Safety Report 12303273 (Version 1)
Quarter: 2016Q2

REPORT INFORMATION
  Report Type: Spontaneous
  Country: SE (occurrence: SE)
  Receive Date: 20160426
  Receipt Date: 20160426
  Transmission Date: 20160815
  Serious: Yes (Other)
  Sender: FDA-Public Use
  Company Number: SE-AMGEN-SWESP2016051026

PATIENT
  Age: 50 Year
  Sex: Male

DRUGS (1)
  1. ENBREL [Suspect]
     Active Substance: ETANERCEPT
     Indication: RHEUMATOID ARTHRITIS
     Dosage: UNK
     Route: 065
     Dates: start: 201104, end: 201511

REACTIONS (5)
  - Adenocarcinoma [Unknown]
  - Chest pain [Unknown]
  - Gastrooesophageal cancer [Unknown]
  - Odynophagia [Unknown]
  - Metastases to lymph nodes [Unknown]
